FAERS Safety Report 6342790-7 (Version None)
Quarter: 2009Q3

REPORT INFORMATION
  Report Type: 
  Country: None (occurrence: None)
  Receive Date: 20090821
  Receipt Date: 20090707
  Transmission Date: 20100115
  Serious: No
  Sender: FDA-Public Use
  Company Number: 8047653

PATIENT
  Age: 55 Year
  Sex: Female

DRUGS (4)
  1. CIMZIA [Suspect]
     Indication: COLITIS ULCERATIVE
     Dosage: 400 MG ONCE SC
     Route: 058
     Dates: start: 20090529, end: 20090530
  2. CIMZIA [Suspect]
     Indication: CROHN'S DISEASE
     Dosage: 400 MG ONCE SC
     Route: 058
     Dates: start: 20090529, end: 20090530
  3. LIALDA [Concomitant]
  4. PREDNISONE TAB [Concomitant]

REACTIONS (10)
  - DIARRHOEA HAEMORRHAGIC [None]
  - HYPOAESTHESIA [None]
  - INJECTION SITE URTICARIA [None]
  - NAUSEA [None]
  - PAIN IN EXTREMITY [None]
  - PYREXIA [None]
  - RETCHING [None]
  - URINARY RETENTION [None]
  - URTICARIA [None]
  - VOMITING [None]
